FAERS Safety Report 9814656 (Version 1)
Quarter: 2014Q1

REPORT INFORMATION
  Report Type: Spontaneous
  Country: US (occurrence: US)
  Receive Date: 20140113
  Receipt Date: 20140113
  Transmission Date: 20141002
  Serious: No
  Sender: FDA-Public Use
  Company Number: US-B.I. PHARMACEUTICALS,INC./RIDGEFIELD-2014-BI-00353BP

PATIENT
  Sex: Male
  Weight: 88 kg

DRUGS (3)
  1. PRADAXA [Suspect]
     Indication: ANTICOAGULANT THERAPY
     Dosage: 300 MG
     Route: 048
     Dates: start: 2011, end: 20140102
  2. PRADAXA [Suspect]
     Dosage: 300 MG
     Route: 048
     Dates: start: 20140103
  3. MULTIVITAMIN [Concomitant]

REACTIONS (2)
  - Dyspepsia [Not Recovered/Not Resolved]
  - Off label use [Unknown]
